FAERS Safety Report 7360881-9 (Version None)
Quarter: 2011Q1

REPORT INFORMATION
  Report Type: 
  Country: None (occurrence: None)
  Receive Date: 20110318
  Receipt Date: 20110303
  Transmission Date: 20110831
  Serious: Yes (Other)
  Sender: FDA-Public Use
  Company Number: PHHY2011US17989

PATIENT
  Age: 39 Year
  Sex: Female

DRUGS (11)
  1. TASIGNA [Suspect]
     Dosage: 1 X DAY
  2. CELEXA [Concomitant]
  3. ZOFRAN [Concomitant]
     Indication: NAUSEA
  4. SKELAXIN [Concomitant]
  5. AMBIEN [Concomitant]
  6. LORTAB [Concomitant]
     Indication: PAIN
  7. PRILOSEC [Concomitant]
  8. WELLBUTRIN [Concomitant]
  9. PROVIGIL [Concomitant]
  10. MOVIK [Concomitant]
  11. NEURONTIN [Concomitant]

REACTIONS (5)
  - ELECTROCARDIOGRAM QT INTERVAL ABNORMAL [None]
  - PAIN [None]
  - MOUTH ULCERATION [None]
  - ABDOMINAL DISCOMFORT [None]
  - HEART RATE INCREASED [None]
